FAERS Safety Report 4339259-8 (Version None)
Quarter: 2004Q2

REPORT INFORMATION
  Report Type: 
  Country: None (occurrence: None)
  Receive Date: 20040412
  Receipt Date: 20040325
  Transmission Date: 20050107
  Serious: Yes (Other)
  Sender: FDA-Public Use
  Company Number: 2004-DE-01804BY

PATIENT
  Sex: Female

DRUGS (4)
  1. KINZALMONO (TELMISARTAN) [Suspect]
     Indication: HYPERTENSION
     Dosage: SEE IMAGE  PO
     Route: 048
     Dates: start: 20040219
  2. KINZALMONO (TELMISARTAN) [Suspect]
     Indication: HYPERTENSION
     Dosage: SEE IMAGE  PO
     Route: 048
     Dates: start: 20040223
  3. NIFEDIPINE [Concomitant]
  4. BENALAPRIL (ENALAPRIL) [Concomitant]

REACTIONS (1)
  - CEREBROVASCULAR ACCIDENT [None]
